FAERS Safety Report 6818017-6 (Version None)
Quarter: 2010Q3

REPORT INFORMATION
  Report Type: 
  Country: None (occurrence: None)
  Receive Date: 20100706
  Receipt Date: 20100625
  Transmission Date: 20110219
  Serious: Yes (Hospitalization)
  Sender: FDA-Public Use
  Company Number: GXKR2010CN07101

PATIENT
  Age: 23 Year
  Sex: Male

DRUGS (9)
  1. ACECLOFENAC (NGX) [Suspect]
     Indication: HEADACHE
     Dosage: 200 MG FOR ONE AND HALF YEARS; 400 MG WHEN HEADACHE WORSENED
     Route: 048
  2. ACECLOFENAC (NGX) [Suspect]
     Indication: ANALGESIC THERAPY
  3. INDOMETHACIN (NGX) [Suspect]
     Indication: HEADACHE
     Dosage: 50 MG FOR HALF A YEAR, INCREASED TO 100 MG WHEN HEADACHE WORSENED
     Route: 048
  4. INDOMETHACIN (NGX) [Suspect]
     Indication: ANALGESIC THERAPY
  5. CELECOXIB [Suspect]
     Indication: ANALGESIC THERAPY
     Dosage: 0.2 G/DAY
     Route: 048
     Dates: start: 20081201
  6. CARBAMAZEPINE [Concomitant]
     Dosage: UNK
     Dates: start: 20080101
  7. ACYCLOVIR [Concomitant]
     Dosage: UNK
     Dates: start: 20080101
  8. MANNITOL [Concomitant]
     Dosage: UNK
     Dates: start: 20080101
  9. DEXAMETHASONE [Concomitant]
     Dosage: UNK
     Dates: start: 20080101

REACTIONS (16)
  - BINOCULAR EYE MOVEMENT DISORDER [None]
  - CYTOMEGALOVIRUS TEST POSITIVE [None]
  - DIPLOPIA [None]
  - DRUG INEFFECTIVE [None]
  - EYELID PTOSIS [None]
  - GAZE PALSY [None]
  - HEADACHE [None]
  - HERPES SIMPLEX SEROLOGY POSITIVE [None]
  - MACULAR REFLEX ABNORMAL [None]
  - OPTIC ATROPHY [None]
  - PACHYMENINGITIS [None]
  - PAIN [None]
  - VIITH NERVE PARALYSIS [None]
  - VISUAL ACUITY REDUCED [None]
  - VITH NERVE PARALYSIS [None]
  - VOMITING [None]
